FAERS Safety Report 6525110-4 (Version None)
Quarter: 2010Q1

REPORT INFORMATION
  Report Type: 
  Country: None (occurrence: None)
  Receive Date: 20100104
  Receipt Date: 20091222
  Transmission Date: 20100710
  Serious: Yes (Death, Other)
  Sender: FDA-Public Use
  Company Number: US-BAYER-200921992NA

PATIENT
  Age: 78 Year
  Sex: Male

DRUGS (4)
  1. CAMPATH [Suspect]
     Indication: CHRONIC LYMPHOCYTIC LEUKAEMIA
     Dosage: STANDARD DOSE
     Dates: start: 20090126, end: 20090413
  2. VALGANCICLOVIR HCL [Concomitant]
  3. EXJADE [Concomitant]
  4. LEUKINE [Concomitant]

REACTIONS (2)
  - CHRONIC LYMPHOCYTIC LEUKAEMIA [None]
  - VIRAL TEST POSITIVE [None]
